FAERS Safety Report 23726223 (Version 1)
Quarter: 2024Q2

REPORT INFORMATION
  Report Type: Other
  Country: QA (occurrence: QA)
  Receive Date: 20240410
  Receipt Date: 20240410
  Transmission Date: 20240716
  Serious: Yes (Hospitalization, Other)
  Sender: FDA-Public Use
  Company Number: QA-ALVOGEN-2024093293

PATIENT
  Age: 52 Year
  Sex: Male

DRUGS (22)
  1. DOXORUBICIN [Suspect]
     Active Substance: DOXORUBICIN
     Indication: B-cell lymphoma stage II
     Dosage: FIRST CYCLE
     Dates: start: 20220623
  2. DOXORUBICIN [Suspect]
     Active Substance: DOXORUBICIN
     Indication: B-cell lymphoma stage II
     Dosage: SECOND CYCLE
     Dates: start: 20220717
  3. DOXORUBICIN [Suspect]
     Active Substance: DOXORUBICIN
     Indication: B-cell lymphoma stage II
     Dosage: THIRD CYCLE
  4. DOXORUBICIN [Suspect]
     Active Substance: DOXORUBICIN
     Indication: B-cell lymphoma stage II
     Dosage: FOURTH CYCLE
     Dates: start: 20220911
  5. RITUXIMAB [Suspect]
     Active Substance: RITUXIMAB
     Indication: B-cell lymphoma stage II
     Dosage: FIRST CYCLE
     Dates: start: 20220623
  6. RITUXIMAB [Suspect]
     Active Substance: RITUXIMAB
     Indication: B-cell lymphoma stage II
     Dosage: SECOND CYCLE
     Dates: start: 20220717
  7. RITUXIMAB [Suspect]
     Active Substance: RITUXIMAB
     Indication: B-cell lymphoma stage II
     Dosage: THIRD CYCLE
  8. RITUXIMAB [Suspect]
     Active Substance: RITUXIMAB
     Indication: B-cell lymphoma stage II
     Dosage: FOURTH CYCLE
     Dates: start: 20220911
  9. RITUXIMAB [Suspect]
     Active Substance: RITUXIMAB
     Indication: B-cell lymphoma stage II
     Dates: start: 20221018
  10. RITUXIMAB [Suspect]
     Active Substance: RITUXIMAB
     Indication: B-cell lymphoma stage II
     Dates: start: 20221109
  11. CYCLOPHOSPHAMIDE [Suspect]
     Active Substance: CYCLOPHOSPHAMIDE
     Indication: B-cell lymphoma stage II
     Dosage: FIRST CYCLE
     Dates: start: 20220623
  12. CYCLOPHOSPHAMIDE [Suspect]
     Active Substance: CYCLOPHOSPHAMIDE
     Indication: B-cell lymphoma stage II
     Dosage: SECOND CYCLE
     Dates: start: 20220717
  13. CYCLOPHOSPHAMIDE [Suspect]
     Active Substance: CYCLOPHOSPHAMIDE
     Indication: B-cell lymphoma stage II
     Dosage: THIRD CYCLE
  14. CYCLOPHOSPHAMIDE [Suspect]
     Active Substance: CYCLOPHOSPHAMIDE
     Indication: B-cell lymphoma stage II
     Dosage: FOURTH CYCLE
     Dates: start: 20220911
  15. VINCRISTINE [Suspect]
     Active Substance: VINCRISTINE
     Indication: B-cell lymphoma stage II
     Dosage: FIRST CYCLE
     Dates: start: 20220623
  16. VINCRISTINE [Suspect]
     Active Substance: VINCRISTINE
     Indication: B-cell lymphoma stage II
     Dosage: SECOND CYCLE
     Dates: start: 20220717
  17. VINCRISTINE [Suspect]
     Active Substance: VINCRISTINE
     Indication: B-cell lymphoma stage II
     Dosage: THIRD CYCLE
  18. VINCRISTINE [Suspect]
     Active Substance: VINCRISTINE
     Indication: B-cell lymphoma stage II
     Dosage: FOURTH CYCLE
     Dates: start: 20220911
  19. PREDNISONE [Suspect]
     Active Substance: PREDNISONE
     Indication: B-cell lymphoma stage II
     Dosage: FIRST CYCLE
     Dates: start: 20220623
  20. PREDNISONE [Suspect]
     Active Substance: PREDNISONE
     Indication: B-cell lymphoma stage II
     Dosage: SECOND CYCLE
     Dates: start: 20220717
  21. PREDNISONE [Suspect]
     Active Substance: PREDNISONE
     Indication: B-cell lymphoma stage II
     Dosage: THIRD CYCLE
  22. PREDNISONE [Suspect]
     Active Substance: PREDNISONE
     Indication: B-cell lymphoma stage II
     Dosage: FOURTH CYCLE
     Dates: start: 20220911

REACTIONS (5)
  - Hyperkalaemia [Unknown]
  - Acute kidney injury [Unknown]
  - Cellulitis [Unknown]
  - Thrombophlebitis [Unknown]
  - Treatment noncompliance [Unknown]
